FAERS Safety Report 10155564 (Version 2)
Quarter: 2014Q2

REPORT INFORMATION
  Report Type: Spontaneous
  Country: TR (occurrence: TR)
  Receive Date: 20140506
  Receipt Date: 20140523
  Transmission Date: 20141212
  Serious: Yes (Hospitalization)
  Sender: FDA-Public Use
  Company Number: TR-ABBVIE-14P-161-1233458-00

PATIENT
  Age: 61 Year
  Sex: Male

DRUGS (2)
  1. SODIUM VALPROATE [Suspect]
     Indication: CONVULSION
  2. LAMOTRIGINE [Suspect]
     Indication: CONVULSION

REACTIONS (7)
  - Drug reaction with eosinophilia and systemic symptoms [Recovered/Resolved]
  - Rash morbilliform [Unknown]
  - Lymphopenia [Unknown]
  - Lymphadenopathy [Unknown]
  - Hepatic function abnormal [Unknown]
  - Oral disorder [Unknown]
  - Pyrexia [Unknown]
